FAERS Safety Report 13745239 (Version 1)
Quarter: 2017Q3

REPORT INFORMATION
  Report Type: Spontaneous
  Country: US (occurrence: US)
  Receive Date: 20170711
  Receipt Date: 20170711
  Transmission Date: 20171127
  Serious: No
  Sender: FDA-Public Use
  Company Number: None

PATIENT
  Sex: Female
  Weight: 83.92 kg

DRUGS (1)
  1. OLMESARTAN [Suspect]
     Active Substance: OLMESARTAN
     Indication: HYPERTENSION
     Dosage: 30MG (1.5 TABS) ONCE DAILY P.O.
     Route: 048
     Dates: start: 20170309, end: 20170706

REACTIONS (2)
  - Skin irritation [None]
  - Pruritus [None]
